FAERS Safety Report 8999146 (Version 5)
Quarter: 2013Q3

REPORT INFORMATION
  Report Type: Report from Study
  Country: JP (occurrence: JP)
  Receive Date: 20130103
  Receipt Date: 20130827
  Transmission Date: 20140515
  Serious: Yes (Other)
  Sender: FDA-Public Use
  Company Number: JP-JNJFOC-20121212375

PATIENT
  Age: 37 Year
  Sex: Male
  Weight: 82 kg

DRUGS (12)
  1. STELARA [Suspect]
     Indication: PSORIASIS
     Route: 058
     Dates: start: 20121222
  2. STELARA [Suspect]
     Indication: PSORIASIS
     Route: 058
     Dates: start: 20120707
  3. STELARA [Suspect]
     Indication: PSORIASIS
     Route: 058
     Dates: start: 20120609
  4. STELARA [Suspect]
     Indication: PSORIASIS
     Route: 058
     Dates: start: 20120929
  5. GLUFAST [Concomitant]
     Indication: DIABETES MELLITUS
     Route: 048
     Dates: start: 20120728
  6. GLUFAST [Concomitant]
     Indication: DIABETES MELLITUS
     Route: 048
     Dates: start: 20120609, end: 20120727
  7. GLUFAST [Concomitant]
     Indication: DIABETES MELLITUS
     Route: 048
     Dates: start: 20120414, end: 20120608
  8. ISCOTIN [Concomitant]
     Indication: PROPHYLAXIS
     Route: 048
     Dates: start: 20120421
  9. PYDOXAL [Concomitant]
     Indication: PROPHYLAXIS
     Route: 048
     Dates: start: 20120421
  10. OXAROL [Concomitant]
     Indication: PSORIASIS
     Route: 061
     Dates: start: 20120526
  11. MYSER [Concomitant]
     Indication: PSORIASIS
     Route: 061
     Dates: start: 20120526
  12. WHITE PETROLATUM [Concomitant]
     Indication: PSORIASIS
     Dates: start: 20120602

REACTIONS (1)
  - Nasopharyngitis [Recovered/Resolved]
